FAERS Safety Report 14690345 (Version 1)
Quarter: 2018Q1

REPORT INFORMATION
  Report Type: Spontaneous
  Country: HR (occurrence: HR)
  Receive Date: 20180328
  Receipt Date: 20180328
  Transmission Date: 20180509
  Serious: Yes (Life-Threatening, Hospitalization)
  Sender: FDA-Public Use
  Company Number: HR-ROCHE-2095485

PATIENT
  Age: 30 Year
  Sex: Female
  Weight: 80 kg

DRUGS (5)
  1. MODITEN OBLOZENE (FLUPHENAZINE HYDROCHLORIDE) [Suspect]
     Active Substance: FLUPHENAZINE HYDROCHLORIDE
     Indication: PSYCHIATRIC SYMPTOM
     Route: 048
     Dates: start: 20180216
  2. NORMABEL [Suspect]
     Active Substance: DIAZEPAM
     Indication: PSYCHIATRIC SYMPTOM
     Route: 048
  3. PRAZINE (PROMAZINE HYDROCHLORIDE) [Suspect]
     Active Substance: PROMAZINE HYDROCHLORIDE
     Indication: PSYCHIATRIC SYMPTOM
     Route: 048
     Dates: start: 20180216
  4. RIVOTRIL [Suspect]
     Active Substance: CLONAZEPAM
     Indication: PSYCHIATRIC SYMPTOM
     Route: 048
  5. LEPONEX [Suspect]
     Active Substance: CLOZAPINE
     Indication: PSYCHIATRIC SYMPTOM
     Route: 048

REACTIONS (3)
  - Dyskinesia [Recovering/Resolving]
  - Tachycardia [Recovering/Resolving]
  - Micturition urgency [Recovering/Resolving]

NARRATIVE: CASE EVENT DATE: 20180216
